FAERS Safety Report 12804921 (Version 1)
Quarter: 2016Q4

REPORT INFORMATION
  Report Type: Spontaneous
  Country: US (occurrence: US)
  Receive Date: 20161004
  Receipt Date: 20161004
  Transmission Date: 20170207
  Serious: No
  Sender: FDA-Public Use
  Company Number: US-009507513-1609USA009672

PATIENT
  Age: 36 Year
  Sex: Female
  Weight: 58.96 kg

DRUGS (3)
  1. NUVARING [Suspect]
     Active Substance: ETHINYL ESTRADIOL\ETONOGESTREL
     Indication: CONTRACEPTION
     Dosage: UNK
     Route: 067
     Dates: start: 201605
  2. NUVARING [Suspect]
     Active Substance: ETHINYL ESTRADIOL\ETONOGESTREL
     Indication: MENSTRUAL CYCLE MANAGEMENT
  3. LEXAPRO [Concomitant]
     Active Substance: ESCITALOPRAM OXALATE

REACTIONS (2)
  - Menstruation irregular [Unknown]
  - Menstruation irregular [Unknown]

NARRATIVE: CASE EVENT DATE: 201608
